FAERS Safety Report 6492013-3 (Version None)
Quarter: 2009Q4

REPORT INFORMATION
  Report Type: 
  Country: None (occurrence: None)
  Receive Date: 20091125
  Receipt Date: 20091002
  Transmission Date: 20100525
  Serious: Yes (Other)
  Sender: FDA-Public Use
  Company Number: 2009BH014576

PATIENT
  Age: 64 Year
  Sex: Male

DRUGS (7)
  1. DIANEAL [Suspect]
     Indication: PERITONEAL DIALYSIS
     Dosage: IP
     Route: 033
  2. BUSPAR [Concomitant]
  3. EFFEXOR [Concomitant]
  4. PANTOPRAZOLE [Concomitant]
  5. SIMVASTATIN [Concomitant]
  6. RENAGEL [Concomitant]
  7. RENALTABS [Concomitant]

REACTIONS (2)
  - PERITONEAL DIALYSIS COMPLICATION [None]
  - PERITONITIS BACTERIAL [None]
